APPROVED DRUG PRODUCT: FLUOCINOLONE ACETONIDE
Active Ingredient: FLUOCINOLONE ACETONIDE
Strength: 0.01%
Dosage Form/Route: SOLUTION;TOPICAL
Application: A207441 | Product #001
Applicant: COSETTE PHARMACEUTICALS INC
Approved: Sep 28, 2016 | RLD: No | RS: No | Type: DISCN